FAERS Safety Report 8371075-2 (Version None)
Quarter: 2012Q2

REPORT INFORMATION
  Report Type: 
  Country: None (occurrence: None)
  Receive Date: 20120518
  Receipt Date: 20110902
  Transmission Date: 20120825
  Serious: Yes (Other)
  Sender: FDA-Public Use
  Company Number: US-BRISTOL-MYERS SQUIBB COMPANY-16028441

PATIENT
  Age: 63 Year
  Sex: Female

DRUGS (5)
  1. BARACLUDE [Suspect]
     Indication: HEPATITIS B
     Dosage: DURATION:8-9MONTHS
  2. OCTREOTIDE ACETATE [Concomitant]
     Dosage: INJECTION
  3. CHLOROQUINE PHOSPHATE [Concomitant]
  4. ZOCOR [Concomitant]
  5. LISINOPRIL [Concomitant]

REACTIONS (1)
  - HAEMATURIA [None]
